FAERS Safety Report 6158778-5 (Version None)
Quarter: 2009Q2

REPORT INFORMATION
  Report Type: 
  Country: None (occurrence: None)
  Receive Date: 20090417
  Receipt Date: 20090415
  Transmission Date: 20091009
  Serious: Yes (Other)
  Sender: FDA-Public Use
  Company Number: B0570266A

PATIENT
  Age: 39 Year
  Sex: Female

DRUGS (2)
  1. CLENIL MODULITE [Suspect]
     Indication: DRUG USE FOR UNKNOWN INDICATION
     Dosage: 200MCG TWICE PER DAY
     Route: 055
     Dates: start: 20090220, end: 20090330
  2. ETHINYL ESTRADIOL AND LEVONORGESTREL [Concomitant]
     Dosage: 1TAB PER DAY
     Route: 048

REACTIONS (1)
  - MUSCLE SPASMS [None]
